FAERS Safety Report 9307186 (Version 1)
Quarter: 2013Q2

REPORT INFORMATION
  Report Type: Spontaneous
  Country: US (occurrence: US)
  Receive Date: 20130524
  Receipt Date: 20130524
  Transmission Date: 20140414
  Serious: Yes (Other)
  Sender: FDA-Public Use
  Company Number: US-ROCHE-781862

PATIENT
  Sex: Female
  Weight: 120.31 kg

DRUGS (3)
  1. ACCUTANE [Suspect]
     Indication: ACNE CYSTIC
     Route: 065
     Dates: start: 198401, end: 1985
  2. ACCUTANE [Suspect]
     Route: 065
  3. TYLENOL [Concomitant]

REACTIONS (13)
  - Colitis ulcerative [Unknown]
  - Depression [Unknown]
  - Post-traumatic stress disorder [Unknown]
  - Bipolar disorder [Unknown]
  - Schizophrenia [Unknown]
  - Obsessive-compulsive disorder [Unknown]
  - Abdominal pain [Unknown]
  - Rectal haemorrhage [Unknown]
  - Fibromyalgia [Unknown]
  - Inflammatory bowel disease [Unknown]
  - Intestinal haemorrhage [Unknown]
  - Intestinal obstruction [Unknown]
  - Suicidal ideation [Unknown]
